FAERS Safety Report 4645407-2 (Version None)
Quarter: 2005Q2

REPORT INFORMATION
  Report Type: 
  Country: None (occurrence: None)
  Receive Date: 20050425
  Receipt Date: 20050414
  Transmission Date: 20051028
  Serious: Yes (Life-Threatening, Hospitalization)
  Sender: FDA-Public Use
  Company Number: 2005061517

PATIENT
  Age: 54 Year
  Sex: Female
  Weight: 95 kg

DRUGS (8)
  1. PHENYTOIN [Suspect]
     Indication: NEURALGIA
     Dosage: ORAL
     Route: 048
     Dates: start: 20050215, end: 20050323
  2. METRONIDAZOLE [Concomitant]
  3. ACYCLOVIR [Concomitant]
  4. NYSTATIN [Concomitant]
  5. NAPROXEN [Concomitant]
  6. BECLOMETHASONE DIPROPIONATE [Concomitant]
  7. CARBAMAZEPINE (CARBAMEZEPINE) [Concomitant]
  8. OMEPRAZOLE [Concomitant]

REACTIONS (3)
  - HYPERSENSITIVITY [None]
  - HYPOTENSION [None]
  - LIVER FUNCTION TEST ABNORMAL [None]
